FAERS Safety Report 26171898 (Version 1)
Quarter: 2025Q4

REPORT INFORMATION
  Report Type: Spontaneous
  Country: CA (occurrence: CA)
  Receive Date: 20251217
  Receipt Date: 20251217
  Transmission Date: 20260118
  Serious: Yes (Other)
  Sender: DR REDDYS
  Company Number: CA-DRL-USA-CAN/2025/12/019114

PATIENT

DRUGS (2)
  1. THRIVE [Suspect]
     Active Substance: NICOTINE
     Indication: Product used for unknown indication
  2. THRIVE [Suspect]
     Active Substance: NICOTINE
     Indication: Product used for unknown indication

REACTIONS (6)
  - Myocardial infarction [Unknown]
  - Dyspnoea [Unknown]
  - Palpitations [Unknown]
  - Fatigue [Unknown]
  - Diarrhoea [Unknown]
  - Dizziness [Unknown]
